FAERS Safety Report 6013427-1 (Version None)
Quarter: 2008Q4

REPORT INFORMATION
  Report Type: 
  Country: None (occurrence: None)
  Receive Date: 20081219
  Receipt Date: 20081215
  Transmission Date: 20090506
  Serious: Yes (Death)
  Sender: FDA-Public Use
  Company Number: US-PFIZER INC-2008153581

PATIENT
  Age: 45 Year
  Sex: Male

DRUGS (6)
  1. AMLODIPINE BESILATE [Suspect]
  2. CLONIDINE [Suspect]
  3. METOPROLOL [Suspect]
  4. METFORMIN HCL [Suspect]
  5. ROSIGLITAZONE [Suspect]
  6. SIMVASTATIN [Suspect]

REACTIONS (1)
  - COMPLETED SUICIDE [None]
